FAERS Safety Report 7116068-8 (Version None)
Quarter: 2010Q4

REPORT INFORMATION
  Report Type: 
  Country: None (occurrence: None)
  Receive Date: 20101122
  Receipt Date: 20101115
  Transmission Date: 20110411
  Serious: Yes (Other)
  Sender: FDA-Public Use
  Company Number: JP-ALLERGAN-1014951US

PATIENT
  Age: 51 Year
  Sex: Male

DRUGS (4)
  1. BOTOX [Suspect]
     Indication: MUSCLE SPASMS
     Route: 030
  2. MORPHINE [Concomitant]
     Indication: PAIN
     Route: 065
  3. MORPHINE [Concomitant]
     Route: 065
  4. TEGRETOL [Concomitant]
     Indication: PAIN
     Route: 048

REACTIONS (1)
  - MUSCLE ATROPHY [None]
